FAERS Safety Report 23635867 (Version 1)
Quarter: 2024Q1

REPORT INFORMATION
  Report Type: Report from Study
  Country: CA (occurrence: CA)
  Receive Date: 20240315
  Receipt Date: 20240315
  Transmission Date: 20240410
  Serious: Yes (Hospitalization, Other)
  Sender: FDA-Public Use
  Company Number: CA-GLAXOSMITHKLINE-CA2023AMR012400

PATIENT

DRUGS (1)
  1. MEPOLIZUMAB [Suspect]
     Active Substance: MEPOLIZUMAB
     Indication: Asthma
     Dosage: 100 MG, Q4W (EVERY 4 WEEKS)
     Route: 058
     Dates: start: 20210202, end: 20231205

REACTIONS (15)
  - Bronchospasm [Unknown]
  - Dyspnoea at rest [Unknown]
  - Respiratory disorder [Unknown]
  - Myalgia [Unknown]
  - Urticaria [Recovering/Resolving]
  - Migraine [Unknown]
  - Hypoaesthesia [Unknown]
  - Ill-defined disorder [Unknown]
  - Condition aggravated [Unknown]
  - Headache [Recovering/Resolving]
  - Musculoskeletal stiffness [Recovering/Resolving]
  - Fatigue [Recovering/Resolving]
  - Dry mouth [Recovering/Resolving]
  - Impaired quality of life [Unknown]
  - Drug ineffective [Unknown]
